FAERS Safety Report 6251778-6 (Version None)
Quarter: 2009Q2

REPORT INFORMATION
  Report Type: 
  Country: None (occurrence: None)
  Receive Date: 20090626
  Receipt Date: 20080625
  Transmission Date: 20091009
  Serious: Yes (Hospitalization)
  Sender: FDA-Public Use
  Company Number: 557331

PATIENT
  Age: 72 Year
  Sex: Female

DRUGS (1)
  1. XELODA [Suspect]
     Indication: BREAST CANCER RECURRENT
     Dosage: 1500 MG 2 PER 1 DAY ORAL
     Route: 048
     Dates: end: 20080401

REACTIONS (6)
  - COLITIS [None]
  - DIARRHOEA [None]
  - MELAENA [None]
  - PALMAR-PLANTAR ERYTHRODYSAESTHESIA SYNDROME [None]
  - PEPTIC ULCER HAEMORRHAGE [None]
  - VOMITING [None]
